FAERS Safety Report 25766219 (Version 1)
Quarter: 2025Q3

REPORT INFORMATION
  Report Type: Spontaneous
  Country: US (occurrence: None)
  Receive Date: 20250904
  Receipt Date: 20250904
  Transmission Date: 20251020
  Serious: Yes (Hospitalization)
  Sender: FDA-CTU
  Company Number: None

PATIENT
  Age: 72 Year
  Sex: Female

DRUGS (9)
  1. NUCALA [Suspect]
     Active Substance: MEPOLIZUMAB
     Indication: Asthma
     Dosage: 100 MG EVERY 4 WEEKS SUBCUTANEOUS?
     Route: 058
     Dates: start: 20250516, end: 20250904
  2. BUDESONIDE [Concomitant]
     Active Substance: BUDESONIDE
  3. DUONEB [Concomitant]
     Active Substance: ALBUTEROL SULFATE\IPRATROPIUM BROMIDE
  4. HYDROCHLOROTHIAZIDE [Concomitant]
     Active Substance: HYDROCHLOROTHIAZIDE
  5. MONTELUKAST [Concomitant]
     Active Substance: MONTELUKAST
  6. OYSTER SHELL CALCIUM WITH VITAMIN D [Concomitant]
     Active Substance: CALCIUM\CHOLECALCIFEROL
  7. PREGABALIN [Concomitant]
     Active Substance: PREGABALIN
  8. TERLEGY ELLIPTA INH [Concomitant]
  9. ALBUTEROL HFA INH [Concomitant]

REACTIONS (4)
  - Chest pain [None]
  - Urticaria [None]
  - Vomiting [None]
  - Therapy cessation [None]
